FAERS Safety Report 9766207 (Version 1)
Quarter: 2013Q4

REPORT INFORMATION
  Report Type: Spontaneous
  Country: US (occurrence: US)
  Receive Date: 20131217
  Receipt Date: 20131217
  Transmission Date: 20140711
  Serious: No
  Sender: FDA-Public Use
  Company Number: US-GLAXOSMITHKLINE-A1022417A

PATIENT
  Age: 60 Year
  Sex: Male

DRUGS (1)
  1. VOTRIENT [Suspect]
     Indication: HEPATIC CANCER
     Dosage: 800MG PER DAY

REACTIONS (3)
  - Abdominal discomfort [Unknown]
  - Rash macular [Unknown]
  - Pruritus [Unknown]
